FAERS Safety Report 7702130-5 (Version None)
Quarter: 2011Q3

REPORT INFORMATION
  Report Type: 
  Country: None (occurrence: None)
  Receive Date: 20110822
  Receipt Date: 20110811
  Transmission Date: 20111222
  Serious: Yes (Hospitalization)
  Sender: FDA-Public Use
  Company Number: BR-US-EMD SERONO, INC.-7076532

PATIENT
  Sex: Female

DRUGS (10)
  1. CLOPIDOGREL [Concomitant]
  2. VENLAFAXINE [Concomitant]
  3. ASPIRIN [Concomitant]
  4. SINVASTATINE [Concomitant]
  5. MANTIDAN [Concomitant]
  6. REBIF [Suspect]
     Indication: RELAPSING-REMITTING MULTIPLE SCLEROSIS
     Dates: start: 20030611, end: 20110517
  7. REBIF [Suspect]
     Dates: start: 20110601
  8. ATENOLOL [Concomitant]
  9. LIPLESS [Concomitant]
  10. ISORDIL [Concomitant]

REACTIONS (4)
  - EMOTIONAL DISTRESS [None]
  - INJECTION SITE ERYTHEMA [None]
  - ACUTE MYOCARDIAL INFARCTION [None]
  - ANGINA PECTORIS [None]
